FAERS Safety Report 4297505-3 (Version None)
Quarter: 2004Q1

REPORT INFORMATION
  Report Type: 
  Country: None (occurrence: None)
  Receive Date: 20040217
  Receipt Date: 20040217
  Transmission Date: 20041129
  Serious: Yes (Disabling)
  Sender: FDA-Public Use
  Company Number: None

PATIENT
  Age: 48 Year
  Sex: Female
  Weight: 49.8957 kg

DRUGS (2)
  1. ZICAM COLD REMEDY GEL AND SWAB [Suspect]
     Indication: NASAL CONGESTION
     Dosage: MAX, TWICE A DAY RANDOMLY, NOT EVERYDAY [ ON AND OFF]
     Dates: start: 20031201, end: 20040201
  2. ZICAM COLD REMEDY GEL AND SWAB [Suspect]
     Indication: NASOPHARYNGITIS
     Dosage: MAX, TWICE A DAY RANDOMLY, NOT EVERYDAY [ ON AND OFF]
     Dates: start: 20031201, end: 20040201

REACTIONS (2)
  - ANOSMIA [None]
  - SINUSITIS [None]
